FAERS Safety Report 24772086 (Version 2)
Quarter: 2025Q3

REPORT INFORMATION
  Report Type: Spontaneous
  Country: US (occurrence: US)
  Receive Date: 20241224
  Receipt Date: 20250731
  Transmission Date: 20251020
  Serious: No
  Sender: SANOFI AVENTIS
  Company Number: US-SA-2024SA375847

PATIENT
  Age: 9 Year
  Sex: Female

DRUGS (2)
  1. DUPIXENT [Suspect]
     Active Substance: DUPILUMAB
     Indication: Dermatitis atopic
     Dosage: 200 MG, QOW
     Route: 058
     Dates: start: 20240419, end: 20250402
  2. DUPIXENT [Suspect]
     Active Substance: DUPILUMAB
     Dates: start: 2025

REACTIONS (4)
  - Rebound atopic dermatitis [Unknown]
  - Product dose omission in error [Unknown]
  - Therapeutic response shortened [Unknown]
  - Distractibility [Unknown]

NARRATIVE: CASE EVENT DATE: 20240101
